FAERS Safety Report 9342450 (Version 4)
Quarter: 2013Q3

REPORT INFORMATION
  Report Type: Spontaneous
  Country: CH (occurrence: CH)
  Receive Date: 20130611
  Receipt Date: 20130816
  Transmission Date: 20140515
  Serious: Yes (Other)
  Sender: FDA-Public Use
  Company Number: PHHY2013CH059034

PATIENT
  Sex: Female

DRUGS (3)
  1. AFINITOR [Suspect]
     Indication: BREAST CANCER
     Dosage: UNK
     Dates: start: 20130501, end: 20130506
  2. AFINITOR [Suspect]
     Dosage: 5 MG, PER DAY
     Route: 048
  3. EXEMESTANE [Concomitant]
     Dosage: UNK
     Dates: start: 20130506

REACTIONS (3)
  - Hepatocellular injury [Recovering/Resolving]
  - Breast cancer [Unknown]
  - Malignant neoplasm progression [Unknown]
